FAERS Safety Report 6014896-3 (Version None)
Quarter: 2008Q4

REPORT INFORMATION
  Report Type: 
  Country: None (occurrence: None)
  Receive Date: 20081219
  Receipt Date: 20080922
  Transmission Date: 20090506
  Serious: No
  Sender: FDA-Public Use
  Company Number: US-B.I. PHARMACEUTICALS,INC./RIDGEFIELD-2006-BP-13584BP

PATIENT
  Age: 72 Year
  Sex: Male

DRUGS (13)
  1. SPIRIVA [Suspect]
     Indication: CHRONIC OBSTRUCTIVE PULMONARY DISEASE
     Dosage: 18MCG
     Route: 055
     Dates: start: 20050101
  2. SPIRIVA [Suspect]
     Indication: EMPHYSEMA
  3. FORMOTEROL/BUDESONIDE [Concomitant]
  4. ALBUTEROL [Concomitant]
  5. SYNTHROID [Concomitant]
  6. TYLENOL (CAPLET) [Concomitant]
  7. M.V.I. [Concomitant]
  8. PALMETTO [Concomitant]
  9. GLUCOSAMINE [Concomitant]
  10. POTASSIUM CHLORIDE [Concomitant]
  11. OXYGEN [Concomitant]
  12. FORADIL [Concomitant]
  13. STEROIDS [Concomitant]

REACTIONS (2)
  - DRUG INEFFECTIVE [None]
  - DRY MOUTH [None]
